FAERS Safety Report 5778380-4 (Version None)
Quarter: 2008Q2

REPORT INFORMATION
  Report Type: 
  Country: None (occurrence: None)
  Receive Date: 20080619
  Receipt Date: 20080610
  Transmission Date: 20081010
  Serious: Yes (Life-Threatening, Hospitalization, Other)
  Sender: FDA-Public Use
  Company Number: US-BAYER-200817125NA

PATIENT
  Age: 49 Year
  Sex: Female
  Weight: 61 kg

DRUGS (4)
  1. AVELOX [Suspect]
     Indication: UPPER RESPIRATORY TRACT INFECTION
     Dosage: TOTAL DAILY DOSE: 400 MG  UNIT DOSE: 400 MG
     Route: 048
     Dates: start: 20080308, end: 20080311
  2. TOPROL-XL [Concomitant]
     Dosage: TOTAL DAILY DOSE: 50 MG
  3. SYNTHROID [Concomitant]
     Dosage: TOTAL DAILY DOSE: 137 ?G
  4. LEVEMIR [Concomitant]
     Dosage: TOTAL DAILY DOSE: 50 U

REACTIONS (4)
  - DEHYDRATION [None]
  - DIABETIC KETOACIDOTIC HYPERGLYCAEMIC COMA [None]
  - LOSS OF CONSCIOUSNESS [None]
  - PANCREATITIS [None]
